FAERS Safety Report 23137457 (Version 1)
Quarter: 2023Q4

REPORT INFORMATION
  Report Type: Spontaneous
  Country: US (occurrence: US)
  Receive Date: 20231102
  Receipt Date: 20231102
  Transmission Date: 20240110
  Serious: Yes (Other)
  Sender: FDA-Public Use
  Company Number: US-PURDUE PHARMA-USA-2023-0303181

PATIENT
  Sex: Female

DRUGS (9)
  1. OXYCONTIN [Suspect]
     Active Substance: OXYCODONE HYDROCHLORIDE
     Indication: Product used for unknown indication
     Dosage: UNKNOWN
     Route: 048
  2. BUPRENORPHINE [Suspect]
     Active Substance: BUPRENORPHINE
     Indication: Product used for unknown indication
     Dosage: 1 MILLIGRAM, DAILY
     Route: 065
  3. BUPRENORPHINE HYDROCHLORIDE AND NALOXONE HYDROCHLORIDE [Suspect]
     Active Substance: BUPRENORPHINE HYDROCHLORIDE\NALOXONE HYDROCHLORIDE
     Indication: Product used for unknown indication
     Dosage: 8-2MG/HALF,BID
     Route: 048
  4. PERCOCET [Suspect]
     Active Substance: ACETAMINOPHEN\OXYCODONE HYDROCHLORIDE
     Indication: Surgery
     Dosage: UNKNOWN
     Route: 065
  5. PERCOCET [Suspect]
     Active Substance: ACETAMINOPHEN\OXYCODONE HYDROCHLORIDE
     Indication: Pain
  6. FENTANYL [Suspect]
     Active Substance: FENTANYL\FENTANYL CITRATE
     Indication: Product used for unknown indication
     Dosage: UNKNOWN
     Route: 065
  7. COCAINE [Suspect]
     Active Substance: COCAINE
     Indication: Product used for unknown indication
     Dosage: UNKNOWN
     Route: 065
  8. CANNABIS SATIVA SUBSP. INDICA TOP [Suspect]
     Active Substance: CANNABIS SATIVA SUBSP. INDICA TOP
     Indication: Product used for unknown indication
     Dosage: UNKNOWN
     Route: 065
  9. XANAX [Suspect]
     Active Substance: ALPRAZOLAM
     Indication: Product used for unknown indication
     Route: 065

REACTIONS (7)
  - Drug dependence [Unknown]
  - Drug abuse [Unknown]
  - Anxiety [Unknown]
  - Fear [Unknown]
  - Pain [Unknown]
  - Impaired quality of life [Unknown]
  - Emotional distress [Unknown]
